FAERS Safety Report 12243919 (Version 2)
Quarter: 2016Q4

REPORT INFORMATION
  Report Type: Report from Study
  Country: JP (occurrence: JP)
  Receive Date: 20160406
  Receipt Date: 20161109
  Transmission Date: 20170207
  Serious: Yes (Hospitalization, Other)
  Sender: FDA-Public Use
  Company Number: JP-GILEAD-2016-0206709

PATIENT
  Age: 66 Year
  Sex: Female
  Weight: 36.7 kg

DRUGS (18)
  1. AMBRISENTAN [Suspect]
     Active Substance: AMBRISENTAN
     Dosage: 2.5 MG, QD
     Route: 048
     Dates: start: 20120720, end: 20130124
  2. URSO [Concomitant]
     Active Substance: URSODIOL
     Dosage: UNK
  3. DIART [Concomitant]
     Active Substance: AZOSEMIDE
     Dosage: UNK
  4. CEFACLOR. [Suspect]
     Active Substance: CEFACLOR
     Indication: PROPHYLAXIS
     Dosage: UNK
     Route: 048
     Dates: start: 20150329, end: 20150424
  5. URSO [Concomitant]
     Active Substance: URSODIOL
     Dosage: UNK
  6. BAYASPIRIN [Concomitant]
     Active Substance: ASPIRIN
     Dosage: UNK
  7. REVATIO [Concomitant]
     Active Substance: SILDENAFIL CITRATE
     Indication: PULMONARY ARTERIAL HYPERTENSION
     Dosage: UNK
  8. AMBRISENTAN [Suspect]
     Active Substance: AMBRISENTAN
     Indication: PULMONARY ARTERIAL HYPERTENSION
     Dosage: 5 MG, BID
     Route: 048
     Dates: start: 20140725
  9. CARELOAD [Concomitant]
     Active Substance: BERAPROST SODIUM
     Indication: PULMONARY ARTERIAL HYPERTENSION
     Dosage: UNK
  10. FERROMIA [Concomitant]
     Active Substance: FERROUS CITRATE
     Dosage: UNK
     Dates: start: 20130222
  11. AZATHIOPRINE. [Suspect]
     Active Substance: AZATHIOPRINE
     Indication: PRODUCT USED FOR UNKNOWN INDICATION
     Dosage: UNK
     Route: 048
     Dates: start: 20120806, end: 20120823
  12. PREDONINE [Suspect]
     Active Substance: PREDNISOLONE\PREDNISOLONE ACETATE\PREDNISOLONE SODIUM SUCCINATE
     Indication: PRODUCT USED FOR UNKNOWN INDICATION
     Dosage: UNK
     Route: 048
     Dates: start: 20120806
  13. SALAGEN [Concomitant]
     Active Substance: PILOCARPINE HYDROCHLORIDE
     Dosage: UNK
  14. FERROMIA (JAPAN) [Concomitant]
     Dosage: UNK
     Dates: start: 20130222
  15. AMBRISENTAN [Suspect]
     Active Substance: AMBRISENTAN
     Indication: PULMONARY ARTERIAL HYPERTENSION
     Dosage: 7.5 MG, 1D
     Route: 048
     Dates: start: 20130726, end: 20140724
  16. AMBRISENTAN [Suspect]
     Active Substance: AMBRISENTAN
     Dosage: 2.5 MG, BID
     Route: 048
     Dates: start: 20130125, end: 20130725
  17. MICARDIS [Concomitant]
     Active Substance: TELMISARTAN
     Dosage: UNK
  18. METHYCOBAL [Concomitant]
     Active Substance: METHYLCOBALAMIN
     Dosage: UNK

REACTIONS (8)
  - Urinary tract infection [Recovered/Resolved]
  - White blood cell count decreased [Recovered/Resolved]
  - Hypothyroidism [Recovered/Resolved]
  - Off label use [Not Recovered/Not Resolved]
  - Bacteraemia [Recovered/Resolved]
  - Renal impairment [Not Recovered/Not Resolved]
  - Pseudomembranous colitis [Recovered/Resolved]
  - Dyslipidaemia [Recovering/Resolving]

NARRATIVE: CASE EVENT DATE: 20120720
